FAERS Safety Report 4290143-8 (Version None)
Quarter: 2004Q1

REPORT INFORMATION
  Report Type: 
  Country: None (occurrence: None)
  Receive Date: 20040209
  Receipt Date: 20040203
  Transmission Date: 20041129
  Serious: Yes (Other)
  Sender: FDA-Public Use
  Company Number: 200401436

PATIENT
  Sex: Female

DRUGS (1)
  1. MOTRIN [Suspect]

REACTIONS (4)
  - BLINDNESS [None]
  - HYPERSENSITIVITY [None]
  - RASH MACULAR [None]
  - SKIN DISORDER [None]
